FAERS Safety Report 8017236-3 (Version None)
Quarter: 2012Q1

REPORT INFORMATION
  Report Type: 
  Country: None (occurrence: None)
  Receive Date: 20120102
  Receipt Date: 20111223
  Transmission Date: 20120608
  Serious: Yes (Other)
  Sender: FDA-Public Use
  Company Number: PHHY2011DE67942

PATIENT
  Sex: Female

DRUGS (7)
  1. ASPIRIN [Concomitant]
     Dosage: 1 DF, QD
     Route: 048
  2. DIOVAN [Suspect]
     Dosage: 1 DF, QD
     Route: 048
     Dates: start: 20110501
  3. RAMIPRIL [Concomitant]
     Dosage: 1.5 DF, UNK
     Route: 048
  4. TORSEMIDE [Concomitant]
     Dosage: 1 DF, UNK
  5. METOPROLOL [Concomitant]
     Dosage: 1 DF, QD
     Route: 048
  6. AMLODIPINE [Concomitant]
     Dosage: UNK UKN, UNK
     Dates: end: 20110501
  7. METHIZOL [Concomitant]
     Dosage: 1 DF, UNK

REACTIONS (14)
  - FACE OEDEMA [None]
  - BLOOD PRESSURE DIASTOLIC DECREASED [None]
  - DRY MOUTH [None]
  - NAUSEA [None]
  - FATIGUE [None]
  - DIARRHOEA [None]
  - HEART RATE DECREASED [None]
  - TONGUE BLISTERING [None]
  - DIZZINESS [None]
  - DYSPHAGIA [None]
  - COUGH [None]
  - DYSPNOEA [None]
  - MYALGIA [None]
  - NOCTURIA [None]
